FAERS Safety Report 20826415 (Version 1)
Quarter: 2022Q2

REPORT INFORMATION
  Report Type: Spontaneous
  Country: ES (occurrence: ES)
  Receive Date: 20220513
  Receipt Date: 20220513
  Transmission Date: 20220721
  Serious: Yes (Hospitalization)
  Sender: FDA-Public Use
  Company Number: None

PATIENT
  Age: 76 Year
  Sex: Male

DRUGS (4)
  1. NIVOLUMAB [Suspect]
     Active Substance: NIVOLUMAB
     Indication: Lung neoplasm malignant
     Dosage: 240.0 MG C/14 DIAS
     Route: 042
     Dates: start: 20200914, end: 20201116
  2. OP2618 - RENUTRYL (DIETETICO, NUTRICION ENTERAL) [Concomitant]
     Indication: Bronchial carcinoma
     Dosage: 300.0 ML DECOCE
     Route: 048
     Dates: start: 20201109
  3. PARACETAMOL MYLAN 1 g COMPRIMIDOS EFG, 40 comprimidos [Concomitant]
     Indication: Product used for unknown indication
     Dosage: 1.0 G DECOCE
     Route: 048
     Dates: start: 20200109
  4. SEVREDOL 10 mg COMPRIMIDOS RECUBIERTOS CON PELICULA , 12 comprimidos [Concomitant]
     Indication: Penile cancer
     Dosage: 10.0 MG C/4 HORAS
     Route: 048
     Dates: start: 20200909

REACTIONS (1)
  - Mucosal inflammation [Recovered/Resolved]

NARRATIVE: CASE EVENT DATE: 20201202
